FAERS Safety Report 7105902-3 (Version None)
Quarter: 2010Q4

REPORT INFORMATION
  Report Type: 
  Country: None (occurrence: None)
  Receive Date: 20101116
  Receipt Date: 20101108
  Transmission Date: 20110411
  Serious: Yes (Hospitalization)
  Sender: FDA-Public Use
  Company Number: B0664016A

PATIENT
  Sex: Female

DRUGS (8)
  1. RYTHMOL [Suspect]
     Dosage: 150MG PER DAY
     Route: 048
     Dates: end: 20100613
  2. PIASCLEDINE [Suspect]
     Route: 048
     Dates: start: 20100511, end: 20100608
  3. ZOCOR [Suspect]
     Route: 065
     Dates: start: 20100513, end: 20100608
  4. RIVOTRIL [Concomitant]
     Dosage: 2MG PER DAY
     Route: 048
     Dates: end: 20100613
  5. OGAST [Concomitant]
     Route: 065
  6. LEVOTHYROXINE SODIUM [Concomitant]
     Dosage: 75MCG PER DAY
     Route: 048
  7. PROZAC [Concomitant]
     Dosage: 20MG PER DAY
     Route: 048
     Dates: end: 20100614
  8. COUMADIN [Concomitant]
     Indication: PULMONARY EMBOLISM
     Route: 065
     Dates: start: 20091101

REACTIONS (3)
  - CHOLESTASIS [None]
  - CYTOLYTIC HEPATITIS [None]
  - JAUNDICE [None]
